FAERS Safety Report 7241628-3 (Version None)
Quarter: 2011Q1

REPORT INFORMATION
  Report Type: 
  Country: None (occurrence: None)
  Receive Date: 20110120
  Receipt Date: 20110120
  Transmission Date: 20110831
  Serious: Yes (Life-Threatening)
  Sender: FDA-Public Use
  Company Number: None

PATIENT
  Sex: Female
  Weight: 54.5 kg

DRUGS (1)
  1. YAZ [Suspect]
     Indication: CONTRACEPTION
     Dates: start: 20090701, end: 20101208

REACTIONS (4)
  - EAR DISORDER [None]
  - SNEEZING [None]
  - EUSTACHIAN TUBE PATULOUS [None]
  - NASAL DISCOMFORT [None]
